FAERS Safety Report 16660936 (Version 1)
Quarter: 2019Q3

REPORT INFORMATION
  Report Type: Spontaneous
  Country: US (occurrence: US)
  Receive Date: 20190801
  Receipt Date: 20190801
  Transmission Date: 20191004
  Serious: Yes (Other)
  Sender: FDA-Public Use
  Company Number: None

PATIENT
  Age: 67 Year
  Sex: Female

DRUGS (4)
  1. CEFDINIR. [Concomitant]
     Active Substance: CEFDINIR
  2. NITROFURANTIN [Concomitant]
     Active Substance: NITROFURANTOIN
  3. REPATHA [Suspect]
     Active Substance: EVOLOCUMAB
     Indication: HYPERTENSION
     Dosage: ?          OTHER FREQUENCY:EVERY 2 WEEKS;?
     Route: 058
     Dates: start: 20180108
  4. PHENAZOPYRID [Concomitant]

REACTIONS (1)
  - Post procedural infection [None]
